FAERS Safety Report 22064350 (Version 4)
Quarter: 2023Q2

REPORT INFORMATION
  Report Type: Spontaneous
  Country: CA (occurrence: CA)
  Receive Date: 20230306
  Receipt Date: 20230510
  Transmission Date: 20230722
  Serious: Yes (Hospitalization)
  Sender: FDA-Public Use
  Company Number: CA-PFIZER INC-202201049517

PATIENT
  Age: 55 Year
  Sex: Female

DRUGS (5)
  1. ABRILADA [Suspect]
     Active Substance: ADALIMUMAB-AFZB
     Indication: Hidradenitis
     Dosage: WEEK 0: 160MG, WEEK 2: 80MG, WEEK 4: 40MG THEN 40MG EVERY WEEK (1DF)
     Route: 058
     Dates: start: 20220505
  2. ABRILADA [Suspect]
     Active Substance: ADALIMUMAB-AFZB
     Dosage: WEEK 0: 160MG, WEEK 2: 80MG, WEEK 4: 40MG THEN 40MG EVERY WEEK
     Route: 058
     Dates: start: 2022
  3. ABRILADA [Suspect]
     Active Substance: ADALIMUMAB-AFZB
     Dosage: WEEK 0: 160MG, WEEK 2: 80MG, WEEK 4: 40MG THEN 40MG EVERY WEEK
     Route: 058
     Dates: start: 20220204, end: 2023
  4. ABRILADA [Suspect]
     Active Substance: ADALIMUMAB-AFZB
     Dosage: WEEK 0: 160MG, WEEK 2: 80MG, WEEK 4: 40MG THEN 40MG EVERY WEEK
     Route: 058
     Dates: end: 202302
  5. ABRILADA [Suspect]
     Active Substance: ADALIMUMAB-AFZB
     Dosage: 40 MG, WEEKLY
     Route: 058
     Dates: start: 202303

REACTIONS (8)
  - Renal failure [Unknown]
  - Renal pain [Unknown]
  - Loss of consciousness [Recovered/Resolved]
  - Fall [Unknown]
  - Therapeutic product effect decreased [Unknown]
  - Feeling abnormal [Not Recovered/Not Resolved]
  - Nodule [Unknown]
  - Intentional product misuse [Unknown]

NARRATIVE: CASE EVENT DATE: 20220101
